FAERS Safety Report 5473256-4 (Version None)
Quarter: 2007Q4

REPORT INFORMATION
  Report Type: 
  Country: None (occurrence: None)
  Receive Date: 20071001
  Receipt Date: 20070927
  Transmission Date: 20080405
  Serious: Yes (Death)
  Sender: FDA-Public Use
  Company Number: PH-ASTRAZENECA-2007AP05617

PATIENT
  Age: 2 Year
  Sex: Male
  Weight: 10 kg

DRUGS (25)
  1. MERONEM [Suspect]
     Indication: PNEUMONIA
     Dosage: SOURCE: HOSPITAL PHARMACY.  ADMINISTRATION STARTED ON THIRD HOSPITAL DAY
     Route: 042
     Dates: start: 20070703
  2. MERONEM [Suspect]
     Dosage: TWO DOSES ADMINISTERED
     Route: 042
  3. MERONEM [Suspect]
     Dosage: SOURCE: HOSPITAL PHARMACY
     Route: 042
  4. CEFTRIAXONE [Concomitant]
  5. SALBUTAMOL [Concomitant]
     Indication: WHEEZING
     Dosage: EIGHT DAYS PRIOR TO ADMISSION
  6. SALBUTAMOL [Concomitant]
     Dosage: STARTED THREE DAYS PRIOR TO ADMISSION
  7. SALBUTAMOL [Concomitant]
     Dosage: DISCONTINUED ON FIFTH HOSPITAL DAY
  8. CLARITHROMYCIN [Concomitant]
     Indication: PNEUMONIA PRIMARY ATYPICAL
  9. CLARITHROMYCIN [Concomitant]
     Dosage: FIFTH HOSPITAL DAY
  10. IPRATROPIUM BROMIDE AND ALBUTEROL SULFATE [Concomitant]
  11. CEPHALEXIN [Concomitant]
     Dosage: EIGHT DAYS PRIOR TO ADMISSION
  12. PARACETAMOL [Concomitant]
     Route: 048
  13. PARACETAMOL [Concomitant]
     Dosage: 30 MINUTES AFTER ADMISSION
     Route: 054
  14. KETOTIFEN SODIUM [Concomitant]
  15. CEFUROXIME [Concomitant]
     Dosage: DISCONTINUED 3 DAYS PRIOR TO ADMISSION.
  16. DIAZEPAM [Concomitant]
     Dosage: 3 DAYS PRIOR TO ADMISSION
     Route: 042
  17. DIAZEPAM [Concomitant]
     Dosage: ON ADMISSION
  18. PENICILLIN G [Concomitant]
     Dosage: COMMENCED THREE DAYS PRIOR TO ADMISSION
     Route: 042
  19. PENICILLIN G [Concomitant]
     Dosage: ON ADMISSION TO THIRD HOSPITAL DAY
  20. CHLORAMPHENICOL [Concomitant]
     Dosage: COMMENCED THREE DAYS PRIOR TO ADMISSION
     Route: 042
  21. PHENOBARBITAL TAB [Concomitant]
     Dosage: ON ADMISSION
     Route: 042
  22. PHENOBARBITAL TAB [Concomitant]
     Dosage: ON ADMISSION
     Route: 042
  23. PHENOBARBITAL TAB [Concomitant]
     Dosage: THIRD HOSPITAL DAY: ROUTE : NASOGASTRIC TUBE
  24. RANITIDINE [Concomitant]
     Dosage: ON ADMISSION
  25. MYCOSTATIN [Concomitant]
     Dosage: ON ADMISSION

REACTIONS (2)
  - MULTI-ORGAN FAILURE [None]
  - POOR QUALITY DRUG ADMINISTERED [None]
